FAERS Safety Report 24455039 (Version 2)
Quarter: 2024Q4

REPORT INFORMATION
  Report Type: Report from Study
  Country: CA (occurrence: CA)
  Receive Date: 20241017
  Receipt Date: 20241018
  Transmission Date: 20250115
  Serious: No
  Sender: ROCHE
  Company Number: CA-ROCHE-3473651

PATIENT
  Sex: Female

DRUGS (19)
  1. RITUXAN [Suspect]
     Active Substance: RITUXIMAB
     Indication: Rheumatoid arthritis
     Dosage: FREQUENCY TEXT:DAY 1, DAY 15
     Route: 042
     Dates: start: 20200730, end: 20220809
  2. RITUXAN [Suspect]
     Active Substance: RITUXIMAB
     Dosage: FREQUENCY TEXT:DAY 1, DAY 15
     Route: 042
  3. ASPIRIN [Concomitant]
     Active Substance: ASPIRIN
     Dates: start: 20220401
  4. ALLOPURINOL [Concomitant]
     Active Substance: ALLOPURINOL
  5. FLUTICASONE FUROATE [Concomitant]
     Active Substance: FLUTICASONE FUROATE
  6. BENADRYL [Concomitant]
     Active Substance: DIPHENHYDRAMINE HYDROCHLORIDE
     Route: 048
     Dates: start: 20200730
  7. BILASTINE [Concomitant]
     Active Substance: BILASTINE
  8. CANDESARTAN [Concomitant]
     Active Substance: CANDESARTAN
     Dates: start: 20220325
  9. DRONABINOL [Concomitant]
     Active Substance: DRONABINOL
     Indication: Arthralgia
     Dates: start: 2022
  10. DEXILANT [Concomitant]
     Active Substance: DEXLANSOPRAZOLE
  11. EZETIMIBE [Concomitant]
     Active Substance: EZETIMIBE
     Indication: Blood cholesterol increased
     Dates: start: 2016
  12. GABAPENTIN [Concomitant]
     Active Substance: GABAPENTIN
     Indication: Pain
  13. KRILL OIL [Concomitant]
     Active Substance: DIETARY SUPPLEMENT\KRILL OIL
  14. MAGNESIUM [Concomitant]
     Active Substance: MAGNESIUM
     Indication: Muscle spasms
     Dates: start: 2022
  15. OMEGA 3 [Concomitant]
     Active Substance: CAPSAICIN
  16. SOLU-MEDROL [Concomitant]
     Active Substance: METHYLPREDNISOLONE SODIUM SUCCINATE
     Route: 042
     Dates: start: 20200730
  17. TIAZAC [Concomitant]
     Active Substance: DILTIAZEM HYDROCHLORIDE
     Dates: start: 2016
  18. TYLENOL [Concomitant]
     Active Substance: ACETAMINOPHEN
     Dosage: 650
     Route: 048
     Dates: start: 20200730
  19. XOLAIR [Concomitant]
     Active Substance: OMALIZUMAB

REACTIONS (1)
  - Movement disorder [Unknown]
